FAERS Safety Report 25217201 (Version 1)
Quarter: 2025Q2

REPORT INFORMATION
  Report Type: Report from Study
  Country: CA (occurrence: CA)
  Receive Date: 20250419
  Receipt Date: 20250419
  Transmission Date: 20250716
  Serious: Yes (Other)
  Sender: Alvotech
  Company Number: CA-JAMP PHARMA CORPORATION-2023-JAM-CA-02377

PATIENT
  Age: 39 Year
  Sex: Female

DRUGS (2)
  1. SIMLANDI [Suspect]
     Active Substance: ADALIMUMAB-RYVK
     Indication: Crohn^s disease
     Route: 058
     Dates: start: 20230819
  2. TAMOXIFEN [Concomitant]
     Active Substance: TAMOXIFEN
     Indication: Product used for unknown indication
     Route: 065

REACTIONS (8)
  - Crohn^s disease [Not Recovered/Not Resolved]
  - Breast cancer [Unknown]
  - Faecal calprotectin increased [Unknown]
  - Abdominal pain [Not Recovered/Not Resolved]
  - Drug level decreased [Unknown]
  - Malaise [Unknown]
  - Product dose omission in error [Unknown]
  - Inappropriate schedule of product administration [Unknown]

NARRATIVE: CASE EVENT DATE: 20231201
